FAERS Safety Report 7354890-3 (Version None)
Quarter: 2011Q1

REPORT INFORMATION
  Report Type: 
  Country: None (occurrence: None)
  Receive Date: 20110311
  Receipt Date: 20110311
  Transmission Date: 20110831
  Serious: No
  Sender: FDA-Public Use
  Company Number: None

PATIENT

DRUGS (1)
  1. TRAMADOL HCL [Suspect]
     Indication: OSTEOARTHRITIS
     Dosage: ONE EVERY 6HOURS PO
     Route: 048
     Dates: start: 20110220, end: 20110221

REACTIONS (3)
  - SINUS CONGESTION [None]
  - NAUSEA [None]
  - BALANCE DISORDER [None]
